FAERS Safety Report 21727643 (Version 1)
Quarter: 2022Q4

REPORT INFORMATION
  Report Type: Spontaneous
  Country: US (occurrence: US)
  Receive Date: 20221214
  Receipt Date: 20221214
  Transmission Date: 20230112
  Serious: No
  Sender: FDA-Public Use
  Company Number: US-SANOFI-01403669

PATIENT
  Age: 6 Year
  Sex: Male

DRUGS (1)
  1. DUPIXENT [Suspect]
     Active Substance: DUPILUMAB
     Indication: Eczema
     Dosage: 300 MG, QW
     Dates: start: 202209

REACTIONS (2)
  - Inappropriate schedule of product administration [Unknown]
  - Product preparation error [Unknown]

NARRATIVE: CASE EVENT DATE: 20220901
